FAERS Safety Report 14676398 (Version 1)
Quarter: 2018Q1

REPORT INFORMATION
  Report Type: Spontaneous
  Country: US (occurrence: US)
  Receive Date: 20180323
  Receipt Date: 20180323
  Transmission Date: 20180509
  Serious: No
  Sender: FDA-Public Use
  Company Number: None

PATIENT
  Age: 77 Year
  Sex: Female
  Weight: 63.5 kg

DRUGS (9)
  1. TORADOL [Suspect]
     Active Substance: KETOROLAC TROMETHAMINE
     Indication: BACK PAIN
  2. SUPER B COMPLEX [Concomitant]
     Active Substance: CYANOCOBALAMIN\DEXPANTHENOL\NIACINAMIDE\PYRIDOXINE HYDROCHLORIDE\RIBOFLAVIN 5^-PHOSPHATE SODIUM\THIAMINE HYDROCHLORIDE\VITAMIN B COMPLEX
  3. LUTEIN [Concomitant]
     Active Substance: LUTEIN
  4. VITAMIN D3 [Concomitant]
     Active Substance: CHOLECALCIFEROL
  5. PROBIOTIC [Concomitant]
     Active Substance: PROBIOTICS NOS
  6. ALPRAZOLAM. [Concomitant]
     Active Substance: ALPRAZOLAM
  7. ESOMEPRAZOLE [Concomitant]
     Active Substance: ESOMEPRAZOLE
  8. GINGER ROOT [Concomitant]
     Active Substance: GINGER
  9. CITRACAL [Concomitant]
     Active Substance: CALCIUM CITRATE

REACTIONS (1)
  - Musculoskeletal pain [None]

NARRATIVE: CASE EVENT DATE: 20171015
